FAERS Safety Report 8359027-X (Version None)
Quarter: 2012Q2

REPORT INFORMATION
  Report Type: 
  Country: None (occurrence: None)
  Receive Date: 20120515
  Receipt Date: 20120507
  Transmission Date: 20120825
  Serious: No
  Sender: FDA-Public Use
  Company Number: US-BIOGENIDEC-2012BI016323

PATIENT
  Age: 36 Year
  Sex: Female

DRUGS (2)
  1. TYSABRI [Suspect]
     Indication: MULTIPLE SCLEROSIS
     Route: 042
     Dates: end: 20120105
  2. TYSABRI [Suspect]
     Route: 042
     Dates: start: 20120402

REACTIONS (3)
  - MUSCULAR WEAKNESS [None]
  - DERMATITIS [None]
  - DRY SKIN [None]
